FAERS Safety Report 7677390-X (Version None)
Quarter: 2011Q3

REPORT INFORMATION
  Report Type: 
  Country: None (occurrence: None)
  Receive Date: 20110808
  Receipt Date: 20110722
  Transmission Date: 20111222
  Serious: Yes (Life-Threatening, Hospitalization, Other)
  Sender: FDA-Public Use
  Company Number: AUR-APL-2011-04429

PATIENT
  Age: 43 Year
  Sex: Female
  Weight: 68 kg

DRUGS (11)
  1. HYDROCHLOROTHIAZIDE [Concomitant]
  2. METFORMIN HCL [Suspect]
     Indication: PRODUCT USED FOR UNKNOWN INDICATION
     Dosage: 3000 MG (1000 MG, 3 I N1 D), ORAL
     Route: 048
     Dates: start: 20040101, end: 20110221
  3. ZYPREXA [Concomitant]
  4. AARANE [Concomitant]
  5. FERROSANOL (FERROUS GLYCINE SULFATE) [Concomitant]
  6. VOLTAREN [Suspect]
     Indication: ARTHRALGIA
     Dosage: 2-3X WEEKLY (50 MG, WK), ORAL
     Route: 048
     Dates: start: 19800101
  7. VOLTAREN [Suspect]
     Indication: PAIN
     Dosage: 2-3X WEEKLY (50 MG, WK), ORAL
     Route: 048
     Dates: start: 19800101
  8. METOPROLOL SUCCINATE [Concomitant]
  9. LEVOTHYROXINE SODIUM [Concomitant]
  10. OMEPRAZOLE [Concomitant]
  11. SERTRALIN (SERTRALINE) [Concomitant]

REACTIONS (2)
  - RENAL FAILURE ACUTE [None]
  - LACTIC ACIDOSIS [None]
